FAERS Safety Report 5209764-0 (Version None)
Quarter: 2006Q4

REPORT INFORMATION
  Report Type: 
  Country: None (occurrence: None)
  Receive Date: 20061128
  Receipt Date: 20060405
  Transmission Date: 20070319
  Serious: Yes (Other)
  Sender: FDA-Public Use
  Company Number: 2006033582

PATIENT
  Age: 82 Year
  Sex: Female
  Weight: 53.5244 kg

DRUGS (12)
  1. TIKOSYN [Suspect]
     Indication: ATRIAL FIBRILLATION
     Dosage: 500 MCG (250 MCG, BID  INTERVAL: EVERY DAY)
     Dates: start: 20060225
  2. SOTALOL HCL [Concomitant]
  3. COZAAR [Concomitant]
  4. HYDROCHLOROTHIAZIDE [Concomitant]
  5. LIPITOR [Concomitant]
  6. DIOVAN [Concomitant]
  7. POTASSIUM (POTASSIUM) [Concomitant]
  8. ASPIRIN [Concomitant]
  9. FISH OIL (FISH OIL) [Concomitant]
  10. GLUCOSAMINE (GLUCOSAMINE) [Concomitant]
  11. LORAZEPAM [Concomitant]
  12. DARVOCET [Concomitant]

REACTIONS (4)
  - ATRIAL FIBRILLATION [None]
  - BLOOD PRESSURE INCREASED [None]
  - CHEST PAIN [None]
  - HEART RATE IRREGULAR [None]
